FAERS Safety Report 5690318-7 (Version None)
Quarter: 2008Q1

REPORT INFORMATION
  Report Type: 
  Country: None (occurrence: None)
  Receive Date: 20080331
  Receipt Date: 20080331
  Transmission Date: 20080703
  Serious: No
  Sender: FDA-Public Use
  Company Number: None

PATIENT
  Age: 53 Year
  Sex: Female
  Weight: 99.7913 kg

DRUGS (2)
  1. SINGULAIR [Suspect]
     Indication: ASTHMA
     Dosage: 10MG DAILY PO
     Route: 048
     Dates: start: 20071201, end: 20080328
  2. ALUPENT [Concomitant]

REACTIONS (4)
  - DEPRESSION [None]
  - FATIGUE [None]
  - LISTLESS [None]
  - SUICIDAL IDEATION [None]
